FAERS Safety Report 6439871-6 (Version None)
Quarter: 2009Q4

REPORT INFORMATION
  Report Type: 
  Country: None (occurrence: None)
  Receive Date: 20091113
  Receipt Date: 20091105
  Transmission Date: 20100525
  Serious: Yes (Hospitalization, Other)
  Sender: FDA-Public Use
  Company Number: BR-ABBOTT-09P-020-0588892-00

PATIENT
  Sex: Female
  Weight: 64 kg

DRUGS (7)
  1. HUMIRA [Suspect]
     Indication: RHEUMATOID ARTHRITIS
     Route: 058
     Dates: start: 20081001
  2. METHOTREXATE [Concomitant]
     Indication: RHEUMATOID ARTHRITIS
     Route: 048
  3. REGULAR INSULIN [Concomitant]
     Indication: DIABETES MELLITUS
     Route: 058
     Dates: start: 20080101
  4. RAPID-ACTING INSULIN [Concomitant]
     Indication: DIABETES MELLITUS
     Route: 058
     Dates: start: 20080101
  5. DIOVAN HCT [Concomitant]
     Indication: HYPERTENSION
     Route: 048
  6. INSULIN DETEMIR [Concomitant]
     Indication: DIABETES MELLITUS
     Dosage: 22IU ON MORNING AND 4IU AT NIGHT
     Route: 058
     Dates: start: 20070101
  7. INSULIN ASPART [Concomitant]
     Indication: DIABETES MELLITUS
     Route: 058
     Dates: start: 20070101

REACTIONS (12)
  - ANAEMIA [None]
  - ARRHYTHMIA [None]
  - ASTHENIA [None]
  - BLOOD CHOLESTEROL INCREASED [None]
  - EFFUSION [None]
  - EYE DISORDER [None]
  - GENERALISED OEDEMA [None]
  - HYPERTENSION [None]
  - HYPERTHYROIDISM [None]
  - PNEUMONIA [None]
  - RENAL FAILURE [None]
  - WEIGHT DECREASED [None]
